FAERS Safety Report 11808264 (Version 3)
Quarter: 2016Q1

REPORT INFORMATION
  Report Type: Spontaneous
  Country: US (occurrence: US)
  Receive Date: 20151207
  Receipt Date: 20160203
  Transmission Date: 20160525
  Serious: Yes (Hospitalization)
  Sender: FDA-Public Use
  Company Number: US-GLAXOSMITHKLINE-US2015172650

PATIENT
  Age: 64 Year
  Sex: Female

DRUGS (1)
  1. TANZEUM [Suspect]
     Active Substance: ALBIGLUTIDE
     Indication: DIABETES MELLITUS
     Dosage: 30 MG, WE
     Route: 058
     Dates: start: 20151025

REACTIONS (5)
  - Device use error [Unknown]
  - Surgery [Unknown]
  - Muscular weakness [Unknown]
  - Large intestine polyp [Unknown]
  - Polypectomy [Recovering/Resolving]

NARRATIVE: CASE EVENT DATE: 20151130
